FAERS Safety Report 20410173 (Version 1)
Quarter: 2022Q1

REPORT INFORMATION
  Report Type: Spontaneous
  Country: US (occurrence: US)
  Receive Date: 20220201
  Receipt Date: 20220201
  Transmission Date: 20220423
  Serious: Yes (Other)
  Sender: FDA-Public Use
  Company Number: US-drreddys-SPO/USA/22/0146366

PATIENT
  Age: 42 Year
  Sex: Male

DRUGS (1)
  1. ACCUTANE [Suspect]
     Active Substance: ISOTRETINOIN
     Indication: Product used for unknown indication
     Dosage: RMA ISSUE DATE : 03 DECEMBER 2021 12:00:00 AM AND 05 JANUARY 2022 05:49:09 PM

REACTIONS (2)
  - Mood altered [Unknown]
  - Arthralgia [Unknown]
